FAERS Safety Report 15591795 (Version 1)
Quarter: 2018Q4

REPORT INFORMATION
  Report Type: Report from Study
  Country: JP (occurrence: JP)
  Receive Date: 20181106
  Receipt Date: 20181106
  Transmission Date: 20190205
  Serious: Yes (Other)
  Sender: FDA-Public Use
  Company Number: JP-BAYER-2018-201864

PATIENT
  Age: 16 Year
  Sex: Male

DRUGS (1)
  1. LINEAR GADOLINIUM [Suspect]
     Active Substance: GADOLINIUM
     Indication: NUCLEAR MAGNETIC RESONANCE IMAGING BRAIN
     Dosage: UNK UNK, ONCE

REACTIONS (3)
  - Hyperintensity in brain deep nuclei [None]
  - Nuclear magnetic resonance imaging abnormal [None]
  - Contrast media deposition [None]
